FAERS Safety Report 23351426 (Version 1)
Quarter: 2023Q4

REPORT INFORMATION
  Report Type: Spontaneous
  Country: US (occurrence: None)
  Receive Date: 20231229
  Receipt Date: 20231229
  Transmission Date: 20240109
  Serious: No
  Sender: FDA-Public Use
  Company Number: None

PATIENT
  Sex: Female

DRUGS (1)
  1. COPAXONE [Suspect]
     Active Substance: GLATIRAMER ACETATE
     Indication: Multiple sclerosis
     Dosage: 40MG 3 TIMES A WEEK UNDER THE SKIN?
     Route: 058
     Dates: start: 202312

REACTIONS (3)
  - Pain [None]
  - Insurance issue [None]
  - Multiple sclerosis relapse [None]

NARRATIVE: CASE EVENT DATE: 20231225
